FAERS Safety Report 6727927-X (Version None)
Quarter: 2010Q2

REPORT INFORMATION
  Report Type: 
  Country: None (occurrence: None)
  Receive Date: 20100517
  Receipt Date: 20100503
  Transmission Date: 20101027
  Serious: Yes (Hospitalization, Other)
  Sender: FDA-Public Use
  Company Number: US-ELI_LILLY_AND_COMPANY-US201003006745

PATIENT
  Sex: Female

DRUGS (11)
  1. FORTEO [Suspect]
     Indication: OSTEOPOROSIS
     Dosage: 20 UG, DAILY (1/D)
     Dates: start: 20091001, end: 20100101
  2. FORTEO [Suspect]
     Dosage: 20 UG, DAILY (1/D)
     Dates: start: 20100313
  3. FORTEO [Suspect]
  4. VICODIN [Concomitant]
     Dosage: 2 MG, UNK
  5. VALIUM [Concomitant]
  6. LOVENOX [Concomitant]
  7. CELEBREX [Concomitant]
  8. PRILOSEC [Concomitant]
  9. LEVOTHYROXINE SODIUM [Concomitant]
  10. MULTI-VIT [Concomitant]
  11. VITAMIN D [Concomitant]
     Dosage: 2000 IU, UNK

REACTIONS (5)
  - ARTHRALGIA [None]
  - BACK PAIN [None]
  - FEMUR FRACTURE [None]
  - PAIN [None]
  - URINARY TRACT INFECTION [None]
